FAERS Safety Report 15630263 (Version 1)
Quarter: 2018Q4

REPORT INFORMATION
  Report Type: Spontaneous
  Country: US (occurrence: US)
  Receive Date: 20181117
  Receipt Date: 20181117
  Transmission Date: 20190205
  Serious: Yes (Other)
  Sender: FDA-Public Use
  Company Number: None

PATIENT
  Age: 73 Year
  Sex: Male
  Weight: 101.25 kg

DRUGS (8)
  1. VITAMIN B COMPLEX [Concomitant]
     Active Substance: CYANOCOBALAMIN\DEXPANTHENOL\NIACINAMIDE\PYRIDOXINE HYDROCHLORIDE\RIBOFLAVIN 5^-PHOSPHATE SODIUM\THIAMINE HYDROCHLORIDE\VITAMIN B COMPLEX
  2. AFRIN NO DRIP SEVERE CONGESTION [Suspect]
     Active Substance: OXYMETAZOLINE HYDROCHLORIDE
     Indication: NASAL CONGESTION
     Dosage: ?          QUANTITY:2 SPRAY(S);?
     Route: 055
     Dates: start: 20181117, end: 20181117
  3. TURMERIC [Concomitant]
     Active Substance: HERBALS\TURMERIC
  4. OMEPRAZOLE. [Concomitant]
     Active Substance: OMEPRAZOLE
  5. NIACINAMIDE [Concomitant]
     Active Substance: NIACINAMIDE
  6. CALCIUM [Concomitant]
     Active Substance: CALCIUM
  7. GARLIC. [Concomitant]
     Active Substance: GARLIC
  8. PROBIOTICS [Concomitant]
     Active Substance: PROBIOTICS NOS

REACTIONS (8)
  - Nasal discomfort [None]
  - Nausea [None]
  - Suffocation feeling [None]
  - Sneezing [None]
  - Malaise [None]
  - Sinus disorder [None]
  - Gastrooesophageal reflux disease [None]
  - Dyspnoea [None]

NARRATIVE: CASE EVENT DATE: 20181117
